FAERS Safety Report 5666765-6 (Version None)
Quarter: 2008Q1

REPORT INFORMATION
  Report Type: 
  Country: None (occurrence: None)
  Receive Date: 20080315
  Receipt Date: 20071221
  Transmission Date: 20080703
  Serious: No
  Sender: FDA-Public Use
  Company Number: US-ABBOTT-07P-163-0431393-00

PATIENT
  Sex: Female
  Weight: 68.1 kg

DRUGS (4)
  1. HUMIRA [Suspect]
     Indication: RHEUMATOID ARTHRITIS
     Route: 058
     Dates: start: 20050101, end: 20060801
  2. HUMIRA [Suspect]
     Dosage: PEN
     Route: 058
     Dates: start: 20060801
  3. HUMIRA [Suspect]
     Indication: RHEUMATOID ARTHRITIS
     Route: 058
     Dates: start: 20060801
  4. PATIENT DECLINED TO REPORT [Concomitant]

REACTIONS (1)
  - INJECTION SITE IRRITATION [None]
